FAERS Safety Report 9768913 (Version 2)
Quarter: 2013Q4

REPORT INFORMATION
  Report Type: Spontaneous
  Country: US (occurrence: US)
  Receive Date: 20131218
  Receipt Date: 20131220
  Transmission Date: 20140711
  Serious: No
  Sender: FDA-Public Use
  Company Number: US-009507513-1312USA006472

PATIENT
  Age: 36 Year
  Sex: Male

DRUGS (2)
  1. REMERON [Suspect]
     Indication: DEPRESSION
     Dosage: 15 MG, QD
     Route: 048
     Dates: start: 20131001
  2. COZAAR [Suspect]
     Route: 048

REACTIONS (2)
  - Hypertension [Recovering/Resolving]
  - Blood glucose increased [Recovering/Resolving]
